FAERS Safety Report 26154807 (Version 2)
Quarter: 2025Q4

REPORT INFORMATION
  Report Type: Spontaneous
  Country: IN (occurrence: IN)
  Receive Date: 20251215
  Receipt Date: 20251219
  Transmission Date: 20260117
  Serious: Yes (Other)
  Sender: MACLEODS
  Company Number: IN-MACLEODS PHARMA-MAC2025057010

PATIENT

DRUGS (1)
  1. VENLAFAXINE [Suspect]
     Active Substance: VENLAFAXINE HYDROCHLORIDE
     Indication: Depression
     Dosage: 37.5MG ONCE A DAY FOR 1  YEAR.
     Route: 065
     Dates: start: 2024

REACTIONS (2)
  - Penile vein thrombosis [Recovering/Resolving]
  - Priapism [Recovering/Resolving]

NARRATIVE: CASE EVENT DATE: 20250101
